FAERS Safety Report 20155134 (Version 1)
Quarter: 2021Q4

REPORT INFORMATION
  Report Type: Spontaneous
  Country: US (occurrence: None)
  Receive Date: 20211206
  Receipt Date: 20211206
  Transmission Date: 20220303
  Serious: Yes (Hospitalization)
  Sender: FDA-Public Use
  Company Number: None

PATIENT
  Age: 69 Year
  Sex: Male

DRUGS (24)
  1. HUMIRA [Suspect]
     Active Substance: ADALIMUMAB
     Indication: Cardiac disorder
     Dosage: FREQUENCY : EVERY OTHER WEEK;?
     Route: 058
     Dates: start: 20180302
  2. ALLOPURINOL [Concomitant]
     Active Substance: ALLOPURINOL
  3. AMLODIPINE [Concomitant]
     Active Substance: AMLODIPINE BESYLATE
  4. AMLODIPINE [Concomitant]
     Active Substance: AMLODIPINE BESYLATE
  5. ATORVASTATIN [Concomitant]
     Active Substance: ATORVASTATIN
  6. CARVEDILOL [Concomitant]
     Active Substance: CARVEDILOL
  7. CIPROFLOXACIN [Concomitant]
     Active Substance: CIPROFLOXACIN
  8. CITALOPRAM [Concomitant]
     Active Substance: CITALOPRAM HYDROBROMIDE
  9. CLARITHROMYC [Concomitant]
  10. CLOPIDOGREL [Concomitant]
     Active Substance: CLOPIDOGREL BISULFATE
  11. GABAPENTIN [Concomitant]
     Active Substance: GABAPENTIN
  12. HYDROXYZINE PAMOATE [Concomitant]
     Active Substance: HYDROXYZINE PAMOATE
  13. JARDIANCE [Concomitant]
     Active Substance: EMPAGLIFLOZIN
  14. METOPROL TAR [Concomitant]
  15. MINOCYCLINE [Concomitant]
     Active Substance: MINOCYCLINE HYDROCHLORIDE
  16. NITROFURANTOIN [Concomitant]
     Active Substance: NITROFURANTOIN
  17. NITROGLYCERIN SUB [Concomitant]
  18. PHENAZOPYRID [Concomitant]
  19. POT CHLORIDE ER [Concomitant]
  20. POT CL MICRO ER [Concomitant]
  21. PREDNISONE [Concomitant]
     Active Substance: PREDNISONE
  22. TAMSULOSIN [Concomitant]
     Active Substance: TAMSULOSIN
  23. TORSEMIDE [Concomitant]
     Active Substance: TORSEMIDE
  24. VALSARTAN [Concomitant]
     Active Substance: VALSARTAN

REACTIONS (2)
  - Cardiac disorder [None]
  - Therapy interrupted [None]

NARRATIVE: CASE EVENT DATE: 20211206
